FAERS Safety Report 17282091 (Version 1)
Quarter: 2020Q1

REPORT INFORMATION
  Report Type: Spontaneous
  Country: US (occurrence: US)
  Receive Date: 20200117
  Receipt Date: 20200117
  Transmission Date: 20200409
  Serious: No
  Sender: FDA-Public Use
  Company Number: US-ADAPT PHARMA INC.-2019ADP00088

PATIENT
  Age: 63 Year
  Sex: Female
  Weight: 54.42 kg

DRUGS (5)
  1. UNSPECIFIED SHOTS FOR HER BACK [Concomitant]
  2. UNSPECIFIED MEDICATION FOR BLOOD PRESSURE [Concomitant]
  3. NARCAN [Suspect]
     Active Substance: NALOXONE HYDROCHLORIDE
     Indication: PRODUCT USED FOR UNKNOWN INDICATION
     Dosage: UNK, UNK
     Route: 045
     Dates: start: 201909, end: 201909
  4. TRAMADOL. [Concomitant]
     Active Substance: TRAMADOL
  5. GABAPENTIN. [Concomitant]
     Active Substance: GABAPENTIN

REACTIONS (8)
  - Wrong technique in product usage process [Recovered/Resolved]
  - Chest discomfort [Recovered/Resolved]
  - Nervousness [Recovered/Resolved]
  - Tremor [Recovered/Resolved]
  - Anxiety [Recovered/Resolved]
  - Unintentional use for unapproved indication [Recovered/Resolved]
  - Product packaging difficult to open [Recovered/Resolved]
  - Nausea [Unknown]

NARRATIVE: CASE EVENT DATE: 2019
